FAERS Safety Report 9243529 (Version 1)
Quarter: 2013Q1

REPORT INFORMATION
  Report Type: Spontaneous
  Country: US (occurrence: None)
  Receive Date: 20121123
  Receipt Date: 20121123
  Transmission Date: 20140127
  Serious: Yes (Hospitalization)
  Sender: FDA-Public Use
  Company Number: 358451

PATIENT
  Age: 40 Year
  Sex: Male
  Weight: 109.3 kg

DRUGS (1)
  1. VICTOZA [Suspect]
     Indication: TYPE 2 DIABETES MELLITUS
     Route: 058
     Dates: start: 201208, end: 201208

REACTIONS (2)
  - Pancreatitis acute [None]
  - Drug hypersensitivity [None]
